FAERS Safety Report 5924763-9 (Version None)
Quarter: 2008Q4

REPORT INFORMATION
  Report Type: 
  Country: None (occurrence: None)
  Receive Date: 20081017
  Receipt Date: 20081010
  Transmission Date: 20090506
  Serious: Yes (Other)
  Sender: FDA-Public Use
  Company Number: CHPA2008US16527

PATIENT
  Age: 77 Year
  Sex: Female

DRUGS (1)
  1. VOLTAREN [Suspect]
     Indication: OSTEOARTHRITIS
     Dosage: 2 G, ONCE DAILY, TOPICAL
     Route: 061
     Dates: start: 20080927, end: 20080929

REACTIONS (5)
  - APPLICATION SITE IRRITATION [None]
  - APPLICATION SITE SWELLING [None]
  - DIZZINESS [None]
  - FATIGUE [None]
  - HEART RATE IRREGULAR [None]
